FAERS Safety Report 22279729 (Version 1)
Quarter: 2023Q2

REPORT INFORMATION
  Report Type: Other
  Country: EG (occurrence: None)
  Receive Date: 20230503
  Receipt Date: 20230503
  Transmission Date: 20230722
  Serious: Yes (Other)
  Sender: FDA-Public Use
  Company Number: EG-ROCHE-3339956

PATIENT
  Age: 66 Year
  Sex: Female
  Weight: 75 kg

DRUGS (2)
  1. PERJETA [Suspect]
     Active Substance: PERTUZUMAB
     Indication: Breast cancer
     Dosage: FREQUENCY:1
     Route: 042
     Dates: start: 20221219
  2. KADCYLA [Suspect]
     Active Substance: ADO-TRASTUZUMAB EMTANSINE
     Indication: Breast cancer
     Dosage: FREQUENCY: ONE
     Route: 042

REACTIONS (2)
  - Mastectomy [Not Recovered/Not Resolved]
  - Purulence [Unknown]
